FAERS Safety Report 17395177 (Version 2)
Quarter: 2020Q1

REPORT INFORMATION
  Report Type: Report from Study
  Country: FR (occurrence: FR)
  Receive Date: 20200210
  Receipt Date: 20200220
  Transmission Date: 20200409
  Serious: Yes (Hospitalization)
  Sender: FDA-Public Use
  Company Number: FR-ROCHE-2532148

PATIENT
  Age: 75 Year
  Sex: Female

DRUGS (4)
  1. PEGYLATED LIPOSOMAL DOXORUBICIN [Suspect]
     Active Substance: DOXORUBICIN
     Indication: OVARIAN CANCER
     Route: 042
     Dates: start: 20190722, end: 20191227
  2. ATEZOLIZUMAB. [Suspect]
     Active Substance: ATEZOLIZUMAB
     Indication: OVARIAN CANCER
     Dosage: DATE OF LAST DOSE OF ATEZOLIZUMAB PRIOR TO SAE ONSET: 27/DEC/2019
     Route: 042
     Dates: start: 20190722, end: 20191227
  3. BEVACIZUMAB. [Suspect]
     Active Substance: BEVACIZUMAB
     Indication: OVARIAN CANCER
     Dosage: DATE OF LAST DOSE OF BEVACIZUMAB (525 MG) PRIOR TO SAE ONSET: 27/DEC/2019
     Route: 042
     Dates: start: 20190722, end: 20191227
  4. CARBOPLATIN. [Suspect]
     Active Substance: CARBOPLATIN
     Indication: OVARIAN CANCER
     Route: 042
     Dates: start: 20190722, end: 20191227

REACTIONS (2)
  - Pancytopenia [Recovered/Resolved]
  - Sepsis [Recovered/Resolved]

NARRATIVE: CASE EVENT DATE: 20200107
